FAERS Safety Report 20421139 (Version 3)
Quarter: 2022Q1

REPORT INFORMATION
  Report Type: Spontaneous
  Country: US (occurrence: US)
  Receive Date: 20220203
  Receipt Date: 20220323
  Transmission Date: 20220423
  Serious: No
  Sender: FDA-Public Use
  Company Number: US-PFIZER INC-202200114389

PATIENT
  Age: 51 Year
  Sex: Male

DRUGS (1)
  1. GENOTROPIN [Suspect]
     Active Substance: SOMATROPIN
     Dosage: 0.6 MG, DAILY

REACTIONS (2)
  - Device breakage [Unknown]
  - Device leakage [Unknown]
